FAERS Safety Report 10898309 (Version 1)
Quarter: 2015Q1

REPORT INFORMATION
  Report Type: Report from Study
  Country: US (occurrence: US)
  Receive Date: 20150309
  Receipt Date: 20150309
  Transmission Date: 20150721
  Serious: Yes (Other)
  Sender: FDA-Public Use
  Company Number: US-ABBVIE-14P-163-1289381-00

PATIENT
  Sex: Female

DRUGS (3)
  1. LUPRON DEPOT [Suspect]
     Active Substance: LEUPROLIDE ACETATE
     Indication: ENDOMETRIOSIS
     Route: 030
     Dates: start: 2010, end: 20120626
  2. LUPRON DEPOT [Suspect]
     Active Substance: LEUPROLIDE ACETATE
     Route: 030
     Dates: start: 20141009
  3. TRI-SPRINTEC [Suspect]
     Active Substance: ETHINYL ESTRADIOL\NORGESTIMATE
     Indication: PELVIC PAIN
     Route: 065
     Dates: start: 201405

REACTIONS (8)
  - Hot flush [Recovered/Resolved]
  - Injection site pain [Recovered/Resolved]
  - Dysmenorrhoea [Not Recovered/Not Resolved]
  - Endometriosis [Recovered/Resolved]
  - Menstrual disorder [Not Recovered/Not Resolved]
  - Pelvic pain [Unknown]
  - Menstrual disorder [Unknown]
  - Endometriosis [Unknown]

NARRATIVE: CASE EVENT DATE: 2010
